FAERS Safety Report 17285110 (Version 1)
Quarter: 2020Q1

REPORT INFORMATION
  Report Type: Spontaneous
  Country: US (occurrence: US)
  Receive Date: 20200117
  Receipt Date: 20200117
  Transmission Date: 20200409
  Serious: No
  Sender: FDA-Public Use
  Company Number: US-TARO-2019TAR00524

PATIENT
  Age: 72 Year
  Sex: Male
  Weight: 58.5 kg

DRUGS (2)
  1. KETOCONAZOLE CREAM 2% [Suspect]
     Active Substance: KETOCONAZOLE
     Indication: TINEA PEDIS
     Dosage: UNK UNK, 2X/DAY
     Route: 061
     Dates: start: 20190507, end: 20190509
  2. NATURE-THROID [Concomitant]
     Active Substance: THYROID, PORCINE
     Dosage: 8.1 ?G, 1X/DAY

REACTIONS (2)
  - Dry skin [Recovered/Resolved]
  - Inappropriate schedule of product administration [Recovered/Resolved]

NARRATIVE: CASE EVENT DATE: 20190507
